FAERS Safety Report 9059941 (Version 1)
Quarter: 2013Q1

REPORT INFORMATION
  Report Type: Spontaneous
  Country: US (occurrence: US)
  Receive Date: 20130212
  Receipt Date: 20130212
  Transmission Date: 20140127
  Serious: Yes (Hospitalization)
  Sender: FDA-Public Use
  Company Number: PHEH2013US003261

PATIENT
  Age: 27 None
  Sex: Female
  Weight: 57.2 kg

DRUGS (9)
  1. EXJADE [Suspect]
     Indication: SICKLE CELL ANAEMIA
     Dosage: 500 MG, BID
     Route: 048
     Dates: start: 201007
  2. DILAUDID [Concomitant]
     Indication: PAIN
     Dosage: 8 MG, PRN
     Route: 048
  3. MS CONTIN [Concomitant]
     Indication: PAIN
     Dosage: 30 MG, TID
     Route: 048
  4. PHENARGAN PLUS [Concomitant]
     Indication: PAIN
     Dosage: 25 MG, PRN
     Route: 048
  5. FOLIC ACID [Concomitant]
     Dosage: 1 MG, GHS
  6. HYDROXYUREA [Concomitant]
  7. MOXIFLOXACIN [Concomitant]
     Indication: UPPER RESPIRATORY TRACT INFECTION
  8. MOXIFLOXACIN [Concomitant]
     Indication: URINARY TRACT INFECTION
  9. TRANSFUSIONS [Concomitant]

REACTIONS (11)
  - Pain in extremity [Recovering/Resolving]
  - Back pain [Recovering/Resolving]
  - Blood lactate dehydrogenase increased [Recovering/Resolving]
  - White blood cell count increased [Recovering/Resolving]
  - Sickle cell anaemia with crisis [Recovering/Resolving]
  - Venoocclusive disease [Recovering/Resolving]
  - Urinary tract infection [Recovering/Resolving]
  - Upper respiratory tract infection [Recovering/Resolving]
  - Pyrexia [Recovering/Resolving]
  - Oropharyngeal pain [Recovering/Resolving]
  - Haemolytic anaemia [Recovering/Resolving]
